FAERS Safety Report 5525642-1 (Version None)
Quarter: 2007Q4

REPORT INFORMATION
  Report Type: 
  Country: None (occurrence: None)
  Receive Date: 20071126
  Receipt Date: 20071119
  Transmission Date: 20080405
  Serious: Yes (Death)
  Sender: FDA-Public Use
  Company Number: US-AMGEN-US152489

PATIENT
  Sex: Female

DRUGS (9)
  1. ENBREL [Suspect]
     Indication: RHEUMATOID ARTHRITIS
     Route: 058
     Dates: start: 20021204, end: 20050908
  2. METHOTREXATE [Suspect]
     Route: 048
     Dates: start: 20011001
  3. CELEBREX [Suspect]
     Route: 048
     Dates: start: 20000101
  4. NEURONTIN [Concomitant]
     Route: 065
     Dates: start: 20050107
  5. SYNTHROID [Concomitant]
     Route: 065
  6. INDERAL [Concomitant]
     Route: 065
  7. ESTRADIOL [Concomitant]
     Route: 065
     Dates: start: 19630901, end: 20050901
  8. DITROPAN [Concomitant]
     Route: 065
     Dates: end: 20050901
  9. CARBIDOPA [Concomitant]
     Route: 065

REACTIONS (1)
  - OVARIAN CANCER [None]
